FAERS Safety Report 24882632 (Version 2)
Quarter: 2025Q2

REPORT INFORMATION
  Report Type: Spontaneous
  Country: US (occurrence: US)
  Receive Date: 20250124
  Receipt Date: 20250528
  Transmission Date: 20250716
  Serious: No
  Sender: MYLAN
  Company Number: US-MYLANLABS-2025M1004513

PATIENT
  Sex: Female

DRUGS (1)
  1. TYRVAYA [Suspect]
     Active Substance: VARENICLINE TARTRATE
     Indication: Dry eye
     Dosage: UNK UNK, BID

REACTIONS (7)
  - Epistaxis [Recovering/Resolving]
  - Blister [Recovering/Resolving]
  - Rash [Recovering/Resolving]
  - Nasal crusting [Recovering/Resolving]
  - Nasal discomfort [Recovering/Resolving]
  - Incorrect dose administered [Unknown]
  - Drug ineffective [Unknown]
